FAERS Safety Report 4313453-4 (Version None)
Quarter: 2004Q1

REPORT INFORMATION
  Report Type: 
  Country: None (occurrence: None)
  Receive Date: 20040308
  Receipt Date: 20040202
  Transmission Date: 20041129
  Serious: Yes (Death, Life-Threatening)
  Sender: FDA-Public Use
  Company Number: WAES 0402USA00350

PATIENT
  Age: 6 Day
  Sex: Female
  Weight: 1 kg

DRUGS (8)
  1. [THERAPY UNSPECIFIED] [Concomitant]
     Indication: NEONATAL RESPIRATORY DISTRESS SYNDROME
     Dates: start: 20020320, end: 20020320
  2. AMIKACIN SULFATE [Concomitant]
     Dates: start: 20020320
  3. AMPICILLIN [Concomitant]
     Dates: start: 20020320
  4. CEFTAZIDIME [Concomitant]
  5. DOBUTAMINE HYDROCHLORIDE AND DOPAMINE HYDROCHLORIDE [Concomitant]
     Dates: start: 20020320, end: 20020328
  6. GRANULOCYTE COLONY STIMULATING FACTOR (UNSPECIFIED) [Concomitant]
  7. INDOCIN [Suspect]
     Indication: PATENT DUCTUS ARTERIOSUS
     Route: 041
     Dates: start: 20020320
  8. VANCOMYCIN HYDROCHLORIDE [Concomitant]

REACTIONS (3)
  - GASTROINTESTINAL PERFORATION [None]
  - MATERNAL DRUGS AFFECTING FOETUS [None]
  - NEONATAL DISORDER [None]
